FAERS Safety Report 17712314 (Version 2)
Quarter: 2020Q3

REPORT INFORMATION
  Report Type: Spontaneous
  Country: US (occurrence: US)
  Receive Date: 20200427
  Receipt Date: 20200817
  Transmission Date: 20201102
  Serious: Yes (Death, Hospitalization, Other)
  Sender: FDA-Public Use
  Company Number: US-GLENMARK PHARMACEUTICALS-2020GMK047510

PATIENT
  Age: 43 Year
  Sex: Male

DRUGS (8)
  1. IRON [Concomitant]
     Active Substance: IRON
     Indication: PRODUCT USED FOR UNKNOWN INDICATION
     Dosage: UNK
     Route: 048
  2. GABAPENTIN. [Interacting]
     Active Substance: GABAPENTIN
     Dosage: 2 DOSAGE FORM, QD (TWO CAPSULES BY MOUTH DAILY AT BEDTIME)
     Route: 048
  3. FOLIC ACID. [Concomitant]
     Active Substance: FOLIC ACID
     Indication: PRODUCT USED FOR UNKNOWN INDICATION
     Dosage: 1 MILLIGRAM, QD
     Route: 048
  4. VENLAFAXINE [Concomitant]
     Active Substance: VENLAFAXINE HYDROCHLORIDE
     Indication: PRODUCT USED FOR UNKNOWN INDICATION
     Dosage: 1 DOSAGE FORM, QD
     Route: 065
  5. PREDNISONE. [Interacting]
     Active Substance: PREDNISONE
     Indication: PRODUCT USED FOR UNKNOWN INDICATION
     Dosage: 3 DOSAGE FORM, AM
     Route: 048
  6. GABAPENTIN. [Interacting]
     Active Substance: GABAPENTIN
     Dosage: 1 DOSAGE FORM, BID (ONE CAPSULE BY MOUTH TWICE A DAY)
     Route: 048
  7. GABAPENTIN. [Suspect]
     Active Substance: GABAPENTIN
     Indication: ALCOHOL WITHDRAWAL SYNDROME
     Dosage: 1 DOSAGE FORM, TID (ONE CAPSULE BY MOUTH 3 TIMES A DAY)
     Route: 048
  8. CLONIDINE. [Interacting]
     Active Substance: CLONIDINE
     Indication: ALCOHOL WITHDRAWAL SYNDROME
     Dosage: 0.1 MILLIGRAM, OD (0.1 MG/24 H) (PATCH SUPPOSED TO BE REMOVED IN 3 DAYS)
     Route: 062

REACTIONS (6)
  - Completed suicide [Fatal]
  - Depression [Unknown]
  - Suicidal ideation [Unknown]
  - Gun shot wound [Unknown]
  - Drug interaction [Fatal]
  - Suicide attempt [Unknown]
